FAERS Safety Report 18006444 (Version 1)
Quarter: 2020Q3

REPORT INFORMATION
  Report Type: Report from Study
  Country: US (occurrence: US)
  Receive Date: 20200710
  Receipt Date: 20200710
  Transmission Date: 20201103
  Serious: Yes (Hospitalization, Other)
  Sender: FDA-Public Use
  Company Number: US-BRISTOL-MYERS SQUIBB COMPANY-BMS-2020-053425

PATIENT
  Sex: Male

DRUGS (1)
  1. WARFARIN SODIUM. [Suspect]
     Active Substance: WARFARIN SODIUM
     Indication: PRODUCT USED FOR UNKNOWN INDICATION
     Dosage: UNK
     Route: 065
     Dates: start: 1993

REACTIONS (7)
  - Dyspnoea [Unknown]
  - Metastatic malignant melanoma [Unknown]
  - Infusion related reaction [Unknown]
  - Respiratory arrest [Unknown]
  - Thrombosis [Unknown]
  - Pulmonary embolism [Unknown]
  - Rash [Unknown]
